FAERS Safety Report 6911365-0 (Version None)
Quarter: 2010Q3

REPORT INFORMATION
  Report Type: 
  Country: None (occurrence: None)
  Receive Date: 20100716
  Receipt Date: 20090731
  Transmission Date: 20110219
  Serious: Yes (Other)
  Sender: FDA-Public Use
  Company Number: 2009249471

PATIENT
  Sex: Male

DRUGS (3)
  1. CELEBREX [Suspect]
     Indication: ARTHRITIS
     Dosage: ORAL
     Route: 048
     Dates: end: 20060301
  2. CELEBREX [Suspect]
     Indication: BURSITIS
     Dosage: ORAL
     Route: 048
     Dates: end: 20060301
  3. OMEPRAZOLE [Concomitant]

REACTIONS (1)
  - GLAUCOMA [None]
